FAERS Safety Report 15538178 (Version 1)
Quarter: 2018Q4

REPORT INFORMATION
  Report Type: Spontaneous
  Country: IT (occurrence: IT)
  Receive Date: 20181022
  Receipt Date: 20181022
  Transmission Date: 20190205
  Serious: Yes (Other)
  Sender: FDA-Public Use
  Company Number: IT-PFIZER INC-2018424589

PATIENT
  Age: 48 Year
  Sex: Female

DRUGS (6)
  1. LANSOPRAZOLE. [Concomitant]
     Active Substance: LANSOPRAZOLE
  2. GAVISCON [SODIUM ALGINATE;SODIUM BICARBONATE] [Concomitant]
  3. IBRANCE [Suspect]
     Active Substance: PALBOCICLIB
     Indication: BREAST CANCER
     Dosage: 125 MG, 1X/DAY
     Route: 048
     Dates: start: 20170609, end: 20171031
  4. TRIPTORELIN [Concomitant]
     Active Substance: TRIPTORELIN
  5. FASLODEX [Concomitant]
     Active Substance: FULVESTRANT
     Dates: start: 20170609, end: 20171003
  6. AUGMENTIN [AMOXICILLIN;CLAVULANIC ACID] [Concomitant]

REACTIONS (4)
  - Anaemia [Recovered/Resolved]
  - Neutropenia [Recovered/Resolved]
  - Thrombocytopenia [Recovered/Resolved]
  - Hypertransaminasaemia [Recovered/Resolved]

NARRATIVE: CASE EVENT DATE: 20170623
